FAERS Safety Report 8442553 (Version 3)
Quarter: 2018Q2

REPORT INFORMATION
  Report Type: Report from Study
  Country: IT (occurrence: IT)
  Receive Date: 20120306
  Receipt Date: 20180521
  Transmission Date: 20180711
  Serious: Yes (Death, Other)
  Sender: FDA-Public Use
  Company Number: IT-CELGENEUS-083-20785-11070420

PATIENT

DRUGS (4)
  1. PANOBINOSTAT [Suspect]
     Active Substance: PANOBINOSTAT
     Indication: PLASMA CELL MYELOMA
     Dosage: 10 TO 20MG
     Route: 048
  2. MELPHALAN. [Suspect]
     Active Substance: MELPHALAN
     Indication: PLASMA CELL MYELOMA
     Dosage: .18 MILLIGRAM/KILOGRAM
     Route: 048
  3. THALIDOMIDE [Suspect]
     Active Substance: THALIDOMIDE
     Indication: PLASMA CELL MYELOMA
     Dosage: 50 MILLIGRAM
     Route: 048
  4. PREDNISONE. [Suspect]
     Active Substance: PREDNISONE
     Indication: PLASMA CELL MYELOMA
     Dosage: 1.5 MILLIGRAM/KILOGRAM
     Route: 048

REACTIONS (19)
  - Arrhythmia [Unknown]
  - Neuropathy peripheral [Unknown]
  - Gastrointestinal toxicity [Unknown]
  - General symptom [Unknown]
  - Embolism [Unknown]
  - Plasma cell myeloma [Fatal]
  - Fatigue [Unknown]
  - Pulmonary haemorrhage [Fatal]
  - Death [Fatal]
  - Septic shock [Fatal]
  - Thrombocytopenia [Unknown]
  - Neutropenia [Unknown]
  - Infection [Unknown]
  - Atrial fibrillation [Unknown]
  - Myocardial infarction [Fatal]
  - Anaemia [Unknown]
  - Constipation [Unknown]
  - Febrile neutropenia [Fatal]
  - Cardiovascular disorder [Unknown]
